FAERS Safety Report 11793175 (Version 1)
Quarter: 2015Q4

REPORT INFORMATION
  Report Type: Spontaneous
  Country: US (occurrence: None)
  Receive Date: 20151201
  Receipt Date: 20151201
  Transmission Date: 20160305
  Serious: No
  Sender: FDA-Public Use
  Company Number: None

PATIENT

DRUGS (1)
  1. 0.9% SODIUM CHLORIDE/20MEQ KCL 1000ML HOSPIRA [Suspect]
     Active Substance: POTASSIUM CHLORIDE\SODIUM CHLORIDE
     Indication: FLUID REPLACEMENT

REACTIONS (1)
  - Product barcode issue [None]

NARRATIVE: CASE EVENT DATE: 20151125
